FAERS Safety Report 8430402-8 (Version None)
Quarter: 2012Q2

REPORT INFORMATION
  Report Type: 
  Country: None (occurrence: None)
  Receive Date: 20120612
  Receipt Date: 20120608
  Transmission Date: 20120825
  Serious: No
  Sender: FDA-Public Use
  Company Number: US-PFIZER INC-2012100369

PATIENT
  Sex: Male
  Weight: 97 kg

DRUGS (2)
  1. NAPROXEN SODIUM [Suspect]
     Dosage: UNK
  2. ADVIL PM [Suspect]
     Indication: PAIN
     Dosage: UNK, AS NEEDED
     Route: 048

REACTIONS (3)
  - FEELING ABNORMAL [None]
  - CIRCUMSTANCE OR INFORMATION CAPABLE OF LEADING TO MEDICATION ERROR [None]
  - DIZZINESS [None]
